FAERS Safety Report 21695767 (Version 1)
Quarter: 2022Q4

REPORT INFORMATION
  Report Type: Spontaneous
  Country: US (occurrence: None)
  Receive Date: 20221206
  Receipt Date: 20221206
  Transmission Date: 20230112
  Serious: Yes (Life-Threatening, Hospitalization, Disabling, Other)
  Sender: FDA-Public Use
  Company Number: None

PATIENT
  Sex: Female

DRUGS (1)
  1. CAPECITABINE [Suspect]
     Active Substance: CAPECITABINE
     Dosage: 2000 MG BID ORAL
     Route: 048

REACTIONS (5)
  - Blood sodium decreased [None]
  - Vomiting [None]
  - Diarrhoea [None]
  - Stomatitis [None]
  - Triple negative breast cancer [None]
